FAERS Safety Report 26049732 (Version 1)
Quarter: 2025Q4

REPORT INFORMATION
  Report Type: Report from Study
  Country: US (occurrence: US)
  Receive Date: 20251115
  Receipt Date: 20251115
  Transmission Date: 20260117
  Serious: Yes (Other)
  Sender: ALEXION PHARMACEUTICALS
  Company Number: US-AstraZeneca-CH-00992529A

PATIENT
  Sex: Female

DRUGS (1)
  1. ACALABRUTINIB [Suspect]
     Active Substance: ACALABRUTINIB
     Indication: Lymphocytic leukaemia
     Dosage: 100 MILLIGRAM, BID

REACTIONS (8)
  - Hepatic atrophy [Unknown]
  - Mood swings [Unknown]
  - Musculoskeletal chest pain [Unknown]
  - Laboratory test abnormal [Unknown]
  - Peripheral swelling [Unknown]
  - Eye pain [Unknown]
  - Vision blurred [Unknown]
  - Fatigue [Unknown]
